FAERS Safety Report 4345885-2 (Version None)
Quarter: 2004Q2

REPORT INFORMATION
  Report Type: 
  Country: None (occurrence: None)
  Receive Date: 20040421
  Receipt Date: 20040402
  Transmission Date: 20050107
  Serious: Yes (Hospitalization)
  Sender: FDA-Public Use
  Company Number: A-CH-2004-05157

PATIENT
  Age: 77 Year
  Sex: Female

DRUGS (10)
  1. TRACLEER [Suspect]
     Indication: PULMONARY HYPERTENSION
     Dosage: SEE IMAGE
     Dates: start: 20030619, end: 20030716
  2. TRACLEER [Suspect]
     Indication: PULMONARY HYPERTENSION
     Dosage: SEE IMAGE
     Dates: start: 20030717, end: 20031211
  3. TRACLEER [Suspect]
     Indication: PULMONARY HYPERTENSION
     Dosage: SEE IMAGE
     Dates: start: 20031212, end: 20040101
  4. SINTROM [Concomitant]
  5. OXYGEN (OXYGEN) [Concomitant]
  6. LASIX [Concomitant]
  7. ALDACTONE [Concomitant]
  8. ASPIRIN [Concomitant]
  9. POTASSIUM CHLORIDE [Concomitant]
  10. DESLORATADINE (DESLORATADINE) [Concomitant]

REACTIONS (7)
  - DRUG INEFFECTIVE [None]
  - DYSPNOEA EXACERBATED [None]
  - JUGULAR VEIN THROMBOSIS [None]
  - OEDEMA PERIPHERAL [None]
  - PULMONARY HYPERTENSION [None]
  - RESPIRATORY FAILURE [None]
  - RIGHT VENTRICULAR FAILURE [None]
